FAERS Safety Report 16837179 (Version 1)
Quarter: 2019Q3

REPORT INFORMATION
  Report Type: Spontaneous
  Country: US (occurrence: US)
  Receive Date: 20190923
  Receipt Date: 20190923
  Transmission Date: 20191005
  Serious: No
  Sender: FDA-Public Use
  Company Number: US-NOVEN PHARMACEUTICALS, INC.-US2019000295

PATIENT

DRUGS (2)
  1. ARMOUR THYROID [Concomitant]
     Active Substance: THYROID, PORCINE
     Indication: THYROID DISORDER
  2. COMBIPATCH [Suspect]
     Active Substance: ESTRADIOL\NORETHINDRONE ACETATE
     Indication: MENOPAUSAL SYMPTOMS
     Dosage: 0.05/0.25 MG, UNKNOWN
     Route: 062

REACTIONS (7)
  - Application site pruritus [Not Recovered/Not Resolved]
  - Product dose omission [Recovered/Resolved]
  - Off label use [Not Recovered/Not Resolved]
  - Application site pain [Unknown]
  - Application site erythema [Unknown]
  - Drug intolerance [Unknown]
  - Application site hypersensitivity [Not Recovered/Not Resolved]

NARRATIVE: CASE EVENT DATE: 201902
